FAERS Safety Report 4984412-3 (Version None)
Quarter: 2006Q2

REPORT INFORMATION
  Report Type: 
  Country: None (occurrence: None)
  Receive Date: 20060421
  Receipt Date: 20060406
  Transmission Date: 20061013
  Serious: Yes (Other)
  Sender: FDA-Public Use
  Company Number: PHEH2006US04584

PATIENT

DRUGS (1)
  1. VISUDYNE [Suspect]

REACTIONS (1)
  - MYOCARDIAL INFARCTION [None]
